FAERS Safety Report 4576585-1 (Version None)
Quarter: 2005Q1

REPORT INFORMATION
  Report Type: 
  Country: None (occurrence: None)
  Receive Date: 20050119
  Receipt Date: 20041013
  Transmission Date: 20050727
  Serious: Yes (Hospitalization)
  Sender: FDA-Public Use
  Company Number: A03200403448

PATIENT
  Age: 80 Year
  Sex: Male
  Weight: 77.1115 kg

DRUGS (9)
  1. PLAVIX [Suspect]
     Indication: STENT PLACEMENT
     Dosage: 75 MG QD - ORAL
     Route: 048
     Dates: start: 20040616, end: 20040917
  2. ANTIHYPERTENSIVE NOS [Concomitant]
  3. CHOLESTEROL LOWERING AGENT [Concomitant]
  4. OXYBUTYNIN [Concomitant]
  5. PRIMIDONE [Concomitant]
  6. OMEPRAZOLE [Concomitant]
  7. FINASTERIDE [Concomitant]
  8. TOPIRAMATE [Concomitant]
  9. RABEPRAZOLE SODIUM [Concomitant]

REACTIONS (4)
  - ANAEMIA [None]
  - DEHYDRATION [None]
  - GASTRIC ULCER HAEMORRHAGE [None]
  - OXYGEN SATURATION DECREASED [None]
